FAERS Safety Report 16132335 (Version 2)
Quarter: 2019Q2

REPORT INFORMATION
  Report Type: Report from Study
  Country: US (occurrence: US)
  Receive Date: 20190329
  Receipt Date: 20190603
  Transmission Date: 20190711
  Serious: Yes (Hospitalization)
  Sender: FDA-Public Use
  Company Number: US-BIOGEN-2019BI00716036

PATIENT
  Sex: Female

DRUGS (2)
  1. TYSABRI [Suspect]
     Active Substance: NATALIZUMAB
     Indication: MULTIPLE SCLEROSIS
     Route: 065
     Dates: start: 20091203, end: 2015
  2. TYSABRI [Suspect]
     Active Substance: NATALIZUMAB
     Dosage: RESTARTED
     Route: 065

REACTIONS (1)
  - Multiple sclerosis [Unknown]
